FAERS Safety Report 8974875 (Version 2)
Quarter: 2013Q1

REPORT INFORMATION
  Report Type: Spontaneous
  Country: IL (occurrence: IL)
  Receive Date: 20121219
  Receipt Date: 20130221
  Transmission Date: 20140127
  Serious: Yes (Hospitalization)
  Sender: FDA-Public Use
  Company Number: IL-PFIZER INC-2012320212

PATIENT
  Age: 58 Year
  Sex: Male

DRUGS (12)
  1. LYRICA [Suspect]
     Indication: NEURALGIA
     Dosage: 150 MG, 2X/DAY
     Route: 048
     Dates: start: 201108
  2. LYRICA [Suspect]
     Dosage: 300 MG, 2X/DAY
     Dates: start: 20120920
  3. CYMBALTA [Concomitant]
  4. PROTHIAZINE [Concomitant]
  5. LITHIUM [Concomitant]
  6. ENTUMIN [Concomitant]
  7. ABILIFY [Concomitant]
  8. CLONEX [Concomitant]
  9. DOSTINEX [Concomitant]
  10. PARTANE [Concomitant]
  11. STILNOX [Concomitant]
  12. DEPALEPT [Concomitant]

REACTIONS (2)
  - Prostatic disorder [Unknown]
  - Drug effect incomplete [Unknown]
